FAERS Safety Report 5925602-2 (Version None)
Quarter: 2008Q4

REPORT INFORMATION
  Report Type: 
  Country: None (occurrence: None)
  Receive Date: 20081021
  Receipt Date: 20081014
  Transmission Date: 20090506
  Serious: Yes (Other)
  Sender: FDA-Public Use
  Company Number: A0752701A

PATIENT
  Sex: Male

DRUGS (1)
  1. COREG [Suspect]

REACTIONS (2)
  - CARDIAC FIBRILLATION [None]
  - HEART RATE INCREASED [None]
